FAERS Safety Report 6822424-5 (Version None)
Quarter: 2010Q3

REPORT INFORMATION
  Report Type: 
  Country: None (occurrence: None)
  Receive Date: 20100706
  Receipt Date: 20100521
  Transmission Date: 20110219
  Serious: Yes (Life-Threatening)
  Sender: FDA-Public Use
  Company Number: 54973 AE #274

PATIENT
  Age: 8 Month
  Sex: Male
  Weight: 10.4327 kg

DRUGS (2)
  1. TEETHING TABLETS [Suspect]
     Dosage: 2 TABS @ MIDNIGHT; 2 TABS @ 8:30 AM
  2. TEETHING TABLETS [Suspect]

REACTIONS (3)
  - DISORIENTATION [None]
  - RESPIRATORY ARREST [None]
  - SKIN DISCOLOURATION [None]
